FAERS Safety Report 8054926-0 (Version None)
Quarter: 2011Q4

REPORT INFORMATION
  Report Type: 
  Country: None (occurrence: None)
  Receive Date: 20111219
  Receipt Date: 20101104
  Transmission Date: 20120403
  Serious: Yes (Hospitalization)
  Sender: FDA-Public Use
  Company Number: WAES 1011USA00701

PATIENT
  Age: 63 Year
  Sex: Male

DRUGS (4)
  1. GLIIZIDE [Concomitant]
  2. METFORMIN HCL [Concomitant]
  3. JANUVIA [Suspect]
     Indication: DIABETES MELLITUS
     Dosage: PO
     Route: 048
  4. JANUMET [Concomitant]

REACTIONS (1)
  - PANCREATITIS ACUTE [None]
